FAERS Safety Report 15099156 (Version 1)
Quarter: 2018Q3

REPORT INFORMATION
  Report Type: Spontaneous
  Country: US (occurrence: US)
  Receive Date: 20180702
  Receipt Date: 20180702
  Transmission Date: 20181010
  Serious: No
  Sender: FDA-Public Use
  Company Number: US-TEVA-2018-US-916374

PATIENT
  Age: 49 Year
  Sex: Female

DRUGS (1)
  1. CLINDAMYCIN. [Suspect]
     Active Substance: CLINDAMYCIN
     Indication: TOOTH ABSCESS
     Route: 065
     Dates: start: 20180621, end: 20180622

REACTIONS (1)
  - Paraesthesia oral [Unknown]

NARRATIVE: CASE EVENT DATE: 20180622
